FAERS Safety Report 19612431 (Version 1)
Quarter: 2021Q3

REPORT INFORMATION
  Report Type: Spontaneous
  Country: US (occurrence: US)
  Receive Date: 20210726
  Receipt Date: 20210726
  Transmission Date: 20211014
  Serious: Yes (Life-Threatening, Other)
  Sender: FDA-Public Use
  Company Number: US-SUN PHARMACEUTICAL INDUSTRIES LTD-2021R1-305516

PATIENT
  Age: 51 Year
  Sex: Female
  Weight: 101.6 kg

DRUGS (3)
  1. PEMBROLIZUMAB. [Suspect]
     Active Substance: PEMBROLIZUMAB
     Indication: CHEMOTHERAPY
     Dosage: 2 MG/KG , EVERY 3 WEEKS
     Route: 065
  2. PEMETREXED. [Suspect]
     Active Substance: PEMETREXED
     Indication: CHEMOTHERAPY
     Dosage: 500 MG/M2 , EVERY 3 WEEKS
     Route: 065
  3. CARBOPLATIN. [Suspect]
     Active Substance: CARBOPLATIN
     Indication: CHEMOTHERAPY
     Dosage: 750 MG , EVERY 3 WEEKS
     Route: 065

REACTIONS (5)
  - Diabetic ketoacidosis [Unknown]
  - Hepatotoxicity [Recovered/Resolved]
  - Gastroenteritis [Recovered/Resolved]
  - Duodenitis [Recovered/Resolved]
  - Rash maculo-papular [Recovered/Resolved]
